FAERS Safety Report 9380448 (Version 1)
Quarter: 2013Q2

REPORT INFORMATION
  Report Type: Spontaneous
  Country: FR (occurrence: None)
  Receive Date: 20130628
  Receipt Date: 20130628
  Transmission Date: 20140414
  Serious: Yes (Death, Hospitalization)
  Sender: FDA-Public Use
  Company Number: 2013MPI00371

PATIENT
  Age: 54 Year
  Sex: Male

DRUGS (6)
  1. BRENTUXIMAB VEDOTIN [Suspect]
     Indication: HODGKIN^S DISEASE
     Route: 042
     Dates: start: 20121115, end: 20121213
  2. FUZEON (ENFUVIRITIDE) [Concomitant]
  3. KIVEXA (ABACAVIR SULFATE, LAMIVUDINE) [Concomitant]
  4. VIREAD (TENOFOVIR DISOPROXIL FUMARATE) [Concomitant]
  5. PREZISTA (DARUNAVIR) [Concomitant]
  6. NORVIR (RITONAVIR) [Concomitant]

REACTIONS (8)
  - Neutropenia [None]
  - Acute respiratory distress syndrome [None]
  - Septic shock [None]
  - Pneumonia influenzal [None]
  - Staphylococcal sepsis [None]
  - Cytomegalovirus infection [None]
  - Renal failure [None]
  - Normochromic normocytic anaemia [None]
